FAERS Safety Report 23803248 (Version 7)
Quarter: 2024Q4

REPORT INFORMATION
  Report Type: Spontaneous
  Country: US (occurrence: US)
  Receive Date: 20240501
  Receipt Date: 20241217
  Transmission Date: 20250115
  Serious: No
  Sender: PFIZER
  Company Number: US-PFIZER INC-PV202400044333

PATIENT
  Age: 12 Year
  Sex: Male

DRUGS (2)
  1. GENOTROPIN [Suspect]
     Active Substance: SOMATROPIN
     Indication: Growth hormone deficiency
     Dosage: 1.5 MG, DAILY 7 DAYS/WEEK/INJECT 1.5 MG NIGHTLY (AT BEDTIME)
     Route: 058
  2. GENOTROPIN [Suspect]
     Active Substance: SOMATROPIN
     Indication: Hypopituitarism

REACTIONS (6)
  - Device issue [Unknown]
  - Device physical property issue [Unknown]
  - Device breakage [Unknown]
  - Product reconstitution quality issue [Unknown]
  - Liquid product physical issue [Unknown]
  - Drug dose omission by device [Unknown]
